FAERS Safety Report 8006172-4 (Version None)
Quarter: 2011Q4

REPORT INFORMATION
  Report Type: 
  Country: None (occurrence: None)
  Receive Date: 20111226
  Receipt Date: 20111215
  Transmission Date: 20120403
  Serious: Yes (Other)
  Sender: FDA-Public Use
  Company Number: JP-BRISTOL-MYERS SQUIBB COMPANY-16192973

PATIENT
  Age: 78 Year
  Sex: Male

DRUGS (9)
  1. VOGLIBOSE [Concomitant]
  2. ISOSORBIDE MONONITRATE [Concomitant]
  3. AMARYL [Concomitant]
  4. PREDNISOLONE [Concomitant]
  5. LANSOPRAZOLE [Concomitant]
  6. ABILIFY [Suspect]
     Route: 048
     Dates: start: 20111004, end: 20111016
  7. BROTIZOLAM [Concomitant]
  8. OXYCONTIN [Suspect]
     Dosage: TABS
     Route: 048
  9. METFORMIN HCL [Concomitant]

REACTIONS (1)
  - CONVULSION [None]
